FAERS Safety Report 14144898 (Version 2)
Quarter: 2017Q4

REPORT INFORMATION
  Report Type: Spontaneous
  Country: JP (occurrence: JP)
  Receive Date: 20171031
  Receipt Date: 20171206
  Transmission Date: 20180321
  Serious: Yes (Death)
  Sender: FDA-Public Use
  Company Number: JP-SA-2017SA180464

PATIENT
  Age: 94 Year
  Sex: Female
  Weight: 41.2 kg

DRUGS (8)
  1. WARFARIN [Concomitant]
     Active Substance: WARFARIN
     Indication: CARDIAC VALVE DISEASE
     Route: 048
     Dates: start: 20161106
  2. HALFDIGOXIN-KY [Concomitant]
     Indication: CARDIAC FAILURE
     Route: 048
     Dates: start: 20161106
  3. ALIROCUMAB PREFILLED PEN [Suspect]
     Active Substance: ALIROCUMAB
     Indication: DYSLIPIDAEMIA
     Dates: end: 20170307
  4. PRALUENT [Suspect]
     Active Substance: ALIROCUMAB
     Indication: DYSLIPIDAEMIA
     Route: 058
     Dates: end: 20170307
  5. YOKUKANSAN [Concomitant]
     Active Substance: HERBALS
     Indication: RESTLESSNESS
     Route: 048
     Dates: start: 20161106
  6. ALDACTONE-A [Concomitant]
     Active Substance: SPIRONOLACTONE
     Indication: CARDIAC FAILURE
     Route: 048
     Dates: start: 20161106
  7. LASIX [Concomitant]
     Active Substance: FUROSEMIDE
     Indication: CARDIAC FAILURE
     Route: 048
     Dates: start: 20161106
  8. ARICEPT [Concomitant]
     Active Substance: DONEPEZIL HYDROCHLORIDE
     Indication: DEMENTIA
     Route: 048
     Dates: start: 20161106

REACTIONS (5)
  - Generalised oedema [Fatal]
  - Oliguria [Fatal]
  - Hypophagia [Fatal]
  - Cardiac failure chronic [Fatal]
  - N-terminal prohormone brain natriuretic peptide increased [Unknown]

NARRATIVE: CASE EVENT DATE: 20170306
